FAERS Safety Report 15998919 (Version 1)
Quarter: 2019Q1

REPORT INFORMATION
  Report Type: Spontaneous
  Country: IT (occurrence: IT)
  Receive Date: 20190223
  Receipt Date: 20190223
  Transmission Date: 20190418
  Serious: Yes (Hospitalization)
  Sender: FDA-Public Use
  Company Number: IT-ACCORD-108896

PATIENT
  Age: 85 Year
  Sex: Female

DRUGS (6)
  1. ESKIM [Concomitant]
     Active Substance: OMEGA-3 FATTY ACIDS
  2. CARDIOASPIRIN [Concomitant]
     Active Substance: ASPIRIN
  3. KANRENOL [Concomitant]
     Active Substance: CANRENOATE POTASSIUM
  4. FUROSEMIDE. [Suspect]
     Active Substance: FUROSEMIDE
     Indication: CONGESTIVE CARDIOMYOPATHY
     Route: 048
     Dates: start: 20180101, end: 20180620
  5. TRIATEC [Concomitant]
  6. CONGESCOR [Concomitant]
     Active Substance: BISOPROLOL

REACTIONS (1)
  - Hyponatraemia [Unknown]

NARRATIVE: CASE EVENT DATE: 20180620
